FAERS Safety Report 17204048 (Version 1)
Quarter: 2019Q4

REPORT INFORMATION
  Report Type: Spontaneous
  Country: US (occurrence: US)
  Receive Date: 20191226
  Receipt Date: 20191226
  Transmission Date: 20200122
  Serious: No
  Sender: FDA-Public Use
  Company Number: US-ABBVIE-19S-163-2614844-00

PATIENT
  Age: 38 Year
  Sex: Female
  Weight: 110.78 kg

DRUGS (4)
  1. LUPRON DEPOT [Suspect]
     Active Substance: LEUPROLIDE ACETATE
     Indication: DESMOID TUMOUR
     Route: 030
     Dates: start: 201805, end: 201901
  2. VITAMIN D [Concomitant]
     Active Substance: VITAMIN D NOS
     Indication: PROPHYLAXIS
  3. LUPRON DEPOT [Suspect]
     Active Substance: LEUPROLIDE ACETATE
     Indication: HORMONE SUPPRESSION THERAPY
  4. CALCIUM, PHOSPHORUS, MAGNESIUM PILL [Concomitant]
     Indication: PROPHYLAXIS

REACTIONS (8)
  - Skin abrasion [Recovered/Resolved]
  - Bone pain [Recovering/Resolving]
  - Hot flush [Recovering/Resolving]
  - Libido decreased [Not Recovered/Not Resolved]
  - Impaired healing [Recovered/Resolved]
  - Insomnia [Recovered/Resolved]
  - Gastrointestinal disorder [Recovering/Resolving]
  - Amnesia [Recovering/Resolving]

NARRATIVE: CASE EVENT DATE: 201805
